FAERS Safety Report 14398533 (Version 1)
Quarter: 2018Q1

REPORT INFORMATION
  Report Type: Spontaneous
  Country: CA (occurrence: CA)
  Receive Date: 20180117
  Receipt Date: 20180117
  Transmission Date: 20180509
  Serious: Yes (Disabling)
  Sender: FDA-Public Use
  Company Number: CA-ABBVIE-18K-028-2224387-00

PATIENT
  Age: 75 Year
  Sex: Male
  Weight: 106.69 kg

DRUGS (1)
  1. HUMIRA [Suspect]
     Active Substance: ADALIMUMAB
     Indication: CROHN^S DISEASE
     Route: 058

REACTIONS (4)
  - Increased upper airway secretion [Recovered/Resolved]
  - Pharyngeal oedema [Recovered/Resolved]
  - Pain [Recovered/Resolved]
  - Respiratory tract congestion [Recovered/Resolved]
